FAERS Safety Report 18849305 (Version 2)
Quarter: 2021Q1

REPORT INFORMATION
  Report Type: Report from Study
  Country: US (occurrence: US)
  Receive Date: 20210205
  Receipt Date: 20210209
  Transmission Date: 20210419
  Serious: No
  Sender: FDA-Public Use
  Company Number: NVSC2021US022542

PATIENT
  Sex: Female

DRUGS (1)
  1. GILENYA [Suspect]
     Active Substance: FINGOLIMOD HYDROCHLORIDE
     Indication: MULTIPLE SCLEROSIS
     Route: 065

REACTIONS (6)
  - Upper-airway cough syndrome [Unknown]
  - Ageusia [Unknown]
  - Oropharyngeal discomfort [Unknown]
  - COVID-19 [Unknown]
  - Fatigue [Unknown]
  - Anosmia [Unknown]
